FAERS Safety Report 18589114 (Version 1)
Quarter: 2020Q4

REPORT INFORMATION
  Report Type: Spontaneous
  Country: US (occurrence: US)
  Receive Date: 20201208
  Receipt Date: 20201208
  Transmission Date: 20210114
  Serious: Yes (Other)
  Sender: FDA-Public Use
  Company Number: US-CELLTRION INC.-2020US033222

PATIENT

DRUGS (6)
  1. METHOTREXATE. [Concomitant]
     Active Substance: METHOTREXATE
     Indication: PROPHYLAXIS
     Route: 037
  2. RITUXIMAB (UNKNOWN) [Suspect]
     Active Substance: RITUXIMAB
     Indication: GREY ZONE LYMPHOMA
     Dosage: SIX CYCLES
  3. EPOCH [Suspect]
     Active Substance: ALCOHOL\SALICYLIC ACID
     Indication: GREY ZONE LYMPHOMA
     Dosage: DOSE-ADJUSTED (DA), SIX CYCLES
  4. DOLUTEGRAVIR [Concomitant]
     Active Substance: DOLUTEGRAVIR
     Dosage: SUBSTITUTED ELVITEGAVIR/COBICISTAT
  5. RITUXIMAB (UNKNOWN) [Suspect]
     Active Substance: RITUXIMAB
     Dosage: EVERY 8 WEEKS FOR 2 YEARS (MAINTENANCE)
  6. COBICISTAT;ELVITEGRAVIR;EMTRICITABINE;TENOFOVIR ALAFENAMIDE FUMARATE [Concomitant]
     Active Substance: COBICISTAT\ELVITEGRAVIR\EMTRICITABINE\TENOFOVIR ALAFENAMIDE FUMARATE
     Indication: HIV INFECTION

REACTIONS (4)
  - Disease recurrence [Unknown]
  - Off label use [Unknown]
  - Drug effective for unapproved indication [Unknown]
  - Grey zone lymphoma [Unknown]
